FAERS Safety Report 14608178 (Version 2)
Quarter: 2018Q2

REPORT INFORMATION
  Report Type: Spontaneous
  Country: US (occurrence: US)
  Receive Date: 20180307
  Receipt Date: 20180417
  Transmission Date: 20180711
  Serious: Yes (Hospitalization, Other)
  Sender: FDA-Public Use
  Company Number: US-PCCINC-T201601252

PATIENT

DRUGS (10)
  1. GABLOFEN [Suspect]
     Active Substance: BACLOFEN
     Dosage: 830 ?G, QD
     Route: 037
  2. BACLOFEN. [Suspect]
     Active Substance: BACLOFEN
     Indication: MUSCLE SPASTICITY
     Dosage: 225 ?G, QD
     Route: 037
  3. GABLOFEN [Suspect]
     Active Substance: BACLOFEN
     Dosage: 900 ?G, QD
     Route: 037
  4. GABLOFEN [Suspect]
     Active Substance: BACLOFEN
     Dosage: 925 ?G, QD
     Route: 037
  5. BACLOFEN. [Suspect]
     Active Substance: BACLOFEN
     Route: 048
  6. GABLOFEN [Suspect]
     Active Substance: BACLOFEN
     Indication: MUSCLE SPASTICITY
     Dosage: 850 ?G, QD
     Route: 037
  7. GABLOFEN [Suspect]
     Active Substance: BACLOFEN
     Dosage: 945 ?G, QD
     Route: 037
  8. GABLOFEN [Suspect]
     Active Substance: BACLOFEN
     Dosage: 225 ?G, QD
     Route: 037
  9. BACLOFEN. [Suspect]
     Active Substance: BACLOFEN
     Dosage: 900 ?G, QD
     Route: 037
  10. H.P. ACTHAR [Concomitant]
     Active Substance: CORTICOTROPIN
     Route: 065

REACTIONS (4)
  - Drug ineffective [Recovering/Resolving]
  - Cerebral disorder [Recovering/Resolving]
  - Amnesia [Recovering/Resolving]
  - Device issue [Unknown]

NARRATIVE: CASE EVENT DATE: 20151019
